FAERS Safety Report 9006581 (Version 2)
Quarter: 2013Q2

REPORT INFORMATION
  Report Type: Report from Study
  Country: US (occurrence: US)
  Receive Date: 20130110
  Receipt Date: 20130419
  Transmission Date: 20140414
  Serious: Yes (Hospitalization, Other)
  Sender: FDA-Public Use
  Company Number: US-BAYER-2012-132853

PATIENT
  Age: 77 Year
  Sex: Male

DRUGS (2)
  1. STIVARGA [Suspect]
     Indication: RECTAL CANCER
     Dosage: 160 MG, QD
     Route: 048
     Dates: start: 20121207, end: 20121226
  2. STIVARGA [Suspect]
     Indication: COLON CANCER

REACTIONS (6)
  - Diabetic coma [Recovered/Resolved]
  - Unresponsive to stimuli [Recovered/Resolved]
  - Blood glucose decreased [Recovered/Resolved]
  - Kidney infection [Not Recovered/Not Resolved]
  - Faeces discoloured [Recovered/Resolved]
  - Drug intolerance [None]
